FAERS Safety Report 6607042-6 (Version None)
Quarter: 2010Q1

REPORT INFORMATION
  Report Type: 
  Country: None (occurrence: None)
  Receive Date: 20100219
  Receipt Date: 20100204
  Transmission Date: 20100710
  Serious: Yes (Other)
  Sender: FDA-Public Use
  Company Number: AUR-APL-2010-00369

PATIENT
  Age: 42 Year
  Sex: Male

DRUGS (3)
  1. RIBAVIRIN [Suspect]
     Indication: HEPATITIS C
     Dosage: 600MG, BID, ORAL
     Route: 048
     Dates: start: 20070701
  2. PEG-INTERFERON [Suspect]
     Indication: HEPATITIS C
     Dosage: 150UG, WEEKLY, SC
     Route: 058
     Dates: start: 20070701
  3. CITALOPRAM HYDROBROMIDE [Concomitant]

REACTIONS (4)
  - ANXIETY [None]
  - FATIGUE [None]
  - POOR QUALITY SLEEP [None]
  - SEXUAL DYSFUNCTION [None]
